FAERS Safety Report 19497666 (Version 4)
Quarter: 2021Q3

REPORT INFORMATION
  Report Type: Report from Study
  Country: CA (occurrence: CA)
  Receive Date: 20210706
  Receipt Date: 20210811
  Transmission Date: 20211014
  Serious: Yes (Hospitalization, Other)
  Sender: FDA-Public Use
  Company Number: CA-TAKEDA-2021TUS041932

PATIENT
  Age: 59 Year
  Sex: Male

DRUGS (3)
  1. VEDOLIZUMAB [Suspect]
     Active Substance: VEDOLIZUMAB
     Dosage: 300 MILLIGRAM
     Route: 042
  2. VEDOLIZUMAB [Suspect]
     Active Substance: VEDOLIZUMAB
     Indication: CROHN^S DISEASE
     Dosage: 300 MILLIGRAM
     Route: 042
     Dates: start: 20210526
  3. PREDNISONE. [Concomitant]
     Active Substance: PREDNISONE
     Dosage: UNK

REACTIONS (7)
  - Diarrhoea [Unknown]
  - Frequent bowel movements [Not Recovered/Not Resolved]
  - Malaise [Unknown]
  - Discomfort [Not Recovered/Not Resolved]
  - Gastrointestinal pain [Unknown]
  - Haematochezia [Unknown]
  - Arthralgia [Unknown]

NARRATIVE: CASE EVENT DATE: 20210602
